FAERS Safety Report 6667800-9 (Version None)
Quarter: 2010Q2

REPORT INFORMATION
  Report Type: 
  Country: None (occurrence: None)
  Receive Date: 20100405
  Receipt Date: 20100322
  Transmission Date: 20101027
  Serious: Yes (Hospitalization)
  Sender: FDA-Public Use
  Company Number: PHHY2010PL19078

PATIENT
  Age: 17 Year
  Sex: Female

DRUGS (4)
  1. METOPROLOL SUCCINATE [Suspect]
     Dosage: 500 MG
     Route: 048
  2. AMLODIPINE [Suspect]
     Dosage: 290 MG
     Route: 048
  3. VERAPAMIL [Suspect]
     Dosage: 2400 MG
     Route: 048
  4. IBUPROFEN [Suspect]
     Dosage: 4400 MG
     Route: 048

REACTIONS (37)
  - ANURIA [None]
  - APNOEA [None]
  - BLOOD CREATININE INCREASED [None]
  - BLOOD GLUCOSE INCREASED [None]
  - BLOOD UREA INCREASED [None]
  - BRADYCARDIA [None]
  - CARDIAC PACEMAKER INSERTION [None]
  - CARDIOGENIC SHOCK [None]
  - CARDIOVERSION [None]
  - COMA [None]
  - COMA SCALE ABNORMAL [None]
  - DEPRESSED LEVEL OF CONSCIOUSNESS [None]
  - DIZZINESS [None]
  - DRUG LEVEL INCREASED [None]
  - GLUCOSE URINE PRESENT [None]
  - HYPERHIDROSIS [None]
  - HYPERKALAEMIA [None]
  - HYPOPERFUSION [None]
  - HYPOTENSION [None]
  - HYPOTONIA [None]
  - HYPOVENTILATION [None]
  - INTRA-AORTIC BALLOON PLACEMENT [None]
  - LIVER DISORDER [None]
  - METABOLIC ACIDOSIS [None]
  - MIOSIS [None]
  - NAUSEA [None]
  - NEUROLOGICAL EXAMINATION ABNORMAL [None]
  - OVERDOSE [None]
  - PALLOR [None]
  - PROTEIN URINE PRESENT [None]
  - PUPILLARY REFLEX IMPAIRED [None]
  - SUICIDE ATTEMPT [None]
  - UNRESPONSIVE TO STIMULI [None]
  - VENTRICULAR FIBRILLATION [None]
  - VENTRICULAR HYPOKINESIA [None]
  - VITAL FUNCTIONS ABNORMAL [None]
  - WRONG DRUG ADMINISTERED [None]
